FAERS Safety Report 22966257 (Version 5)
Quarter: 2023Q4

REPORT INFORMATION
  Report Type: Spontaneous
  Country: US (occurrence: US)
  Receive Date: 20230921
  Receipt Date: 20231208
  Transmission Date: 20240109
  Serious: No
  Sender: FDA-Public Use
  Company Number: US-PFIZER INC-PV202300150366

PATIENT
  Age: 79 Year
  Sex: Female
  Weight: 67.12 kg

DRUGS (4)
  1. GENOTROPIN [Suspect]
     Active Substance: SOMATROPIN
     Indication: Growth hormone deficiency
     Dosage: 0.35 MG, DAILY
  2. GENOTROPIN [Suspect]
     Active Substance: SOMATROPIN
     Dosage: 3 MG, DAILY
     Dates: start: 202012
  3. GENOTROPIN [Suspect]
     Active Substance: SOMATROPIN
     Dosage: TAKING 4 MG, 3MG, 3 MG ON ALTERNATE DAY. FOR A TOTAL OF 5MG EVERY 15 DAYS
     Route: 058
     Dates: start: 202102
  4. GENOTROPIN [Suspect]
     Active Substance: SOMATROPIN
     Dosage: TAKING 4 MG, 3MG, 3 MG ON ALTERNATE DAY. FOR A TOTAL OF 5MG EVERY 15 DAYS
     Route: 058
     Dates: start: 202102

REACTIONS (8)
  - Malaise [Unknown]
  - Asthenia [Recovering/Resolving]
  - Fatigue [Recovering/Resolving]
  - Device malfunction [Unknown]
  - Wrong technique in device usage process [Unknown]
  - Device mechanical issue [Unknown]
  - Device issue [Unknown]
  - Product prescribing error [Unknown]
